FAERS Safety Report 8004512-3 (Version None)
Quarter: 2011Q4

REPORT INFORMATION
  Report Type: 
  Country: None (occurrence: None)
  Receive Date: 20111221
  Receipt Date: 20111221
  Transmission Date: 20120403
  Serious: Yes (Hospitalization)
  Sender: FDA-Public Use
  Company Number: None

PATIENT
  Age: 82 Year
  Sex: Female
  Weight: 62.7 kg

DRUGS (6)
  1. SYNTHROID [Concomitant]
  2. ALTACE [Concomitant]
  3. ASPIRIN [Suspect]
     Indication: CORONARY ARTERY DISEASE
     Dosage: 81 MG DAILY PO CHRONIC
     Route: 048
  4. NORVASC [Concomitant]
  5. CRESTOR [Concomitant]
  6. FOSAMAX [Concomitant]

REACTIONS (3)
  - HAEMATOCHEZIA [None]
  - DIVERTICULUM INTESTINAL HAEMORRHAGIC [None]
  - RENAL FAILURE ACUTE [None]
